FAERS Safety Report 20566639 (Version 2)
Quarter: 2022Q1

REPORT INFORMATION
  Report Type: Spontaneous
  Country: JP (occurrence: JP)
  Receive Date: 20220308
  Receipt Date: 20220328
  Transmission Date: 20220423
  Serious: Yes (Death)
  Sender: FDA-Public Use
  Company Number: JP-ELI_LILLY_AND_COMPANY-JP202203001416

PATIENT
  Age: 56 Year
  Sex: Female

DRUGS (4)
  1. EMGALITY [Suspect]
     Active Substance: GALCANEZUMAB-GNLM
     Indication: Migraine
     Dosage: 120 MG, MONTHLY (1/M)
     Route: 058
     Dates: start: 202106, end: 20210729
  2. RELPAX [Concomitant]
     Active Substance: ELETRIPTAN HYDROBROMIDE
  3. NAUZELIN [Concomitant]
     Active Substance: DOMPERIDONE
  4. SG [APRONAL;CAFFEINE;PARACETAMOL;PROPYPHENAZO [Concomitant]

REACTIONS (1)
  - Accident [Fatal]
